FAERS Safety Report 6010251-0 (Version None)
Quarter: 2008Q4

REPORT INFORMATION
  Report Type: 
  Country: None (occurrence: None)
  Receive Date: 20081218
  Receipt Date: 20080228
  Transmission Date: 20090506
  Serious: No
  Sender: FDA-Public Use
  Company Number: A0712438A

PATIENT
  Age: 43 Year
  Sex: Female

DRUGS (4)
  1. FLONASE [Suspect]
     Dosage: .05ML PER DAY
     Route: 045
  2. SEREVENT [Concomitant]
  3. ZYRTEC [Concomitant]
  4. SINGULAIR [Concomitant]

REACTIONS (4)
  - CANDIDIASIS [None]
  - DYSGEUSIA [None]
  - INCREASED UPPER AIRWAY SECRETION [None]
  - THERMAL BURN [None]
